FAERS Safety Report 7237377-8 (Version None)
Quarter: 2011Q1

REPORT INFORMATION
  Report Type: 
  Country: None (occurrence: None)
  Receive Date: 20110121
  Receipt Date: 20110103
  Transmission Date: 20110831
  Serious: No
  Sender: FDA-Public Use
  Company Number: US-PFIZER INC-US-WYE-H15527210

PATIENT
  Sex: Female

DRUGS (6)
  1. ABILIFY [Suspect]
     Dosage: UNK
     Route: 065
     Dates: end: 20080401
  2. DEPAKOTE [Suspect]
  3. EFFEXOR XR [Suspect]
     Indication: DEPRESSION
     Dosage: 75 MG, 1X/DAY
     Route: 048
     Dates: start: 20040101
  4. NEURONTIN [Suspect]
  5. EFFEXOR [Suspect]
     Indication: DEPRESSION
     Dosage: UNK
     Route: 065
  6. EFFEXOR XR [Suspect]
     Dosage: 150 MG, 3X/DAY
     Route: 048
     Dates: end: 20100501

REACTIONS (4)
  - THERAPEUTIC RESPONSE UNEXPECTED [None]
  - DRUG WITHDRAWAL SYNDROME [None]
  - WEIGHT INCREASED [None]
  - WEIGHT DECREASED [None]
